FAERS Safety Report 4613201-4 (Version None)
Quarter: 2005Q1

REPORT INFORMATION
  Report Type: 
  Country: None (occurrence: None)
  Receive Date: 20050315
  Receipt Date: 20050303
  Transmission Date: 20050727
  Serious: Yes (Hospitalization, Other)
  Sender: FDA-Public Use
  Company Number: 2005039804

PATIENT
  Age: 78 Year
  Sex: Male

DRUGS (5)
  1. LIPITOR [Suspect]
     Indication: ILL-DEFINED DISORDER
     Dosage: 10 MG (1 IN 1 D), ORAL
     Route: 048
     Dates: start: 20050123, end: 20050201
  2. CANDESARTAN CILEXETIL (CANDESARTAN CILEXETIL) [Concomitant]
  3. LANSOPRAZOLE [Concomitant]
  4. BISOPROLOL FUMARATE [Concomitant]
  5. TICLOPIDINE HCL [Concomitant]

REACTIONS (2)
  - CORONARY ANGIOPLASTY [None]
  - RHABDOMYOLYSIS [None]
